FAERS Safety Report 19390120 (Version 2)
Quarter: 2021Q3

REPORT INFORMATION
  Report Type: Report from Study
  Country: SE (occurrence: SE)
  Receive Date: 20210608
  Receipt Date: 20210721
  Transmission Date: 20211014
  Serious: Yes (Hospitalization, Other)
  Sender: FDA-Public Use
  Company Number: SE-TAKEDA-2020TUS048298

PATIENT
  Age: 68 Year
  Sex: Female

DRUGS (16)
  1. RESONIUM [Concomitant]
     Active Substance: SODIUM POLYSTYRENE SULFONATE
     Indication: HYPERKALAEMIA
     Dosage: 15 GRAM, BID
     Route: 048
     Dates: start: 20191111, end: 20191219
  2. XIFAXAN [Concomitant]
     Active Substance: RIFAXIMIN
     Indication: OVERGROWTH BACTERIAL
     Dosage: 550.0 MILLIGRAM, BID
     Route: 048
     Dates: start: 20210129
  3. TEDUGLUTIDE [Suspect]
     Active Substance: TEDUGLUTIDE
     Indication: SHORT-BOWEL SYNDROME
     Dosage: 1.9 MILLIGRAM (0.05 MG/KG),  TED DOSAGE 7 PER WEEK
     Route: 065
     Dates: start: 20141216, end: 20200220
  4. TEDUGLUTIDE [Suspect]
     Active Substance: TEDUGLUTIDE
     Indication: SHORT-BOWEL SYNDROME
     Dosage: 1.9 MILLIGRAM (0.05 MG/KG),  TED DOSAGE 7 PER WEEK
     Route: 065
     Dates: start: 20141216, end: 20200220
  5. TEDUGLUTIDE [Suspect]
     Active Substance: TEDUGLUTIDE
     Dosage: 3.4 MILLIGRAM, QD
     Route: 065
     Dates: start: 20200220
  6. METRONIDAZOLE. [Concomitant]
     Active Substance: METRONIDAZOLE
     Indication: GASTROINTESTINAL DISORDER
     Dosage: 400 MILLIGRAM, TID
     Route: 048
     Dates: start: 20201007
  7. INNOHEP [Concomitant]
     Active Substance: TINZAPARIN SODIUM
     Indication: THROMBOSIS
     Dosage: 12000.00 INTERNATIONAL UNIT, QD
     Route: 058
     Dates: start: 20201110
  8. INCRUSE ELLIPTA [Concomitant]
     Active Substance: UMECLIDINIUM BROMIDE
     Indication: CHRONIC OBSTRUCTIVE PULMONARY DISEASE
     Dosage: 1.00 PUFFS, QD
     Route: 048
     Dates: start: 20210209
  9. TEDUGLUTIDE [Suspect]
     Active Substance: TEDUGLUTIDE
     Dosage: 3.4 MILLIGRAM, QD
     Route: 065
     Dates: start: 20200220
  10. RESONIUM [Concomitant]
     Active Substance: SODIUM POLYSTYRENE SULFONATE
     Dosage: 7.5 GRAM, QD
     Route: 048
     Dates: start: 20200928
  11. CIPROFLOXACIN. [Concomitant]
     Active Substance: CIPROFLOXACIN
     Indication: GASTROINTESTINAL DISORDER
     Dosage: 250 MILLIGRAM, BID
     Route: 048
     Dates: start: 20200909, end: 20200929
  12. TEDUGLUTIDE [Suspect]
     Active Substance: TEDUGLUTIDE
     Indication: SHORT-BOWEL SYNDROME
     Dosage: 1.9 MILLIGRAM (0.05 MG/KG),  TED DOSAGE 7 PER WEEK
     Route: 065
     Dates: start: 20141216, end: 20200220
  13. TEDUGLUTIDE [Suspect]
     Active Substance: TEDUGLUTIDE
     Indication: SHORT-BOWEL SYNDROME
     Dosage: 1.9 MILLIGRAM (0.05 MG/KG),  TED DOSAGE 7 PER WEEK
     Route: 065
     Dates: start: 20141216, end: 20200220
  14. TEDUGLUTIDE [Suspect]
     Active Substance: TEDUGLUTIDE
     Dosage: 3.4 MILLIGRAM, QD
     Route: 065
     Dates: start: 20200220
  15. TEDUGLUTIDE [Suspect]
     Active Substance: TEDUGLUTIDE
     Dosage: 3.4 MILLIGRAM, QD
     Route: 065
     Dates: start: 20200220
  16. CIPROFLOXACIN. [Concomitant]
     Active Substance: CIPROFLOXACIN
     Dosage: 550 MILLIGRAM, BID
     Route: 048
     Dates: start: 20210129

REACTIONS (4)
  - Pelvic venous thrombosis [Not Recovered/Not Resolved]
  - Hyperkalaemia [Recovered/Resolved]
  - COVID-19 [Recovered/Resolved]
  - Diarrhoea [Recovered/Resolved]

NARRATIVE: CASE EVENT DATE: 20200713
